FAERS Safety Report 9844320 (Version 1)
Quarter: 2014Q1

REPORT INFORMATION
  Report Type: Spontaneous
  Country: US (occurrence: None)
  Receive Date: 20140123
  Receipt Date: 20140123
  Transmission Date: 20141002
  Serious: Yes (Other)
  Sender: FDA-Public Use
  Company Number: None

PATIENT
  Age: 52 Year
  Sex: Female
  Weight: 55.79 kg

DRUGS (1)
  1. IMIQUIMOD [Suspect]
     Indication: PRECANCEROUS CELLS PRESENT
     Dosage: APPLY MON, WED, FRI PM 3 X PER WEEK APPLIED TO A SURFACE, USUALLY THE SKIN
     Route: 061
     Dates: start: 20131220, end: 20131228

REACTIONS (5)
  - Respiratory disorder [None]
  - Diarrhoea [None]
  - Influenza [None]
  - Anxiety [None]
  - Malaise [None]
